FAERS Safety Report 6812035-X (Version None)
Quarter: 2010Q3

REPORT INFORMATION
  Report Type: 
  Country: None (occurrence: None)
  Receive Date: 20100701
  Receipt Date: 20100622
  Transmission Date: 20110219
  Serious: Yes (Hospitalization)
  Sender: FDA-Public Use
  Company Number: IT-ASTRAZENECA-2010SE21563

PATIENT
  Age: 23441 Day
  Sex: Male

DRUGS (7)
  1. ANTRA [Suspect]
     Indication: PROPHYLAXIS AGAINST GASTROINTESTINAL ULCER
     Route: 048
     Dates: start: 20100410, end: 20100429
  2. BACTRIM [Concomitant]
     Indication: ANTIBIOTIC PROPHYLAXIS
     Dosage: 160 MG + 800 MG, 3 DF
     Route: 048
     Dates: start: 20091201, end: 20100504
  3. FOLINA [Concomitant]
     Indication: DRUG TOXICITY PROPHYLAXIS
     Route: 048
     Dates: start: 20100415, end: 20100429
  4. ACYCLOVIR [Concomitant]
     Indication: ANTIVIRAL PROPHYLAXIS
     Route: 048
     Dates: start: 20091201, end: 20100504
  5. KEPPRA [Concomitant]
     Indication: CONVULSION
     Route: 048
     Dates: start: 20080101, end: 20100504
  6. DIFLUCAN [Concomitant]
     Indication: ANTIFUNGAL PROPHYLAXIS
     Route: 048
     Dates: start: 20091201, end: 20100504
  7. LEVOXACIN [Concomitant]
     Indication: ANTIBIOTIC PROPHYLAXIS
     Route: 048
     Dates: start: 20100310, end: 20100324

REACTIONS (3)
  - EOSINOPHILIA [None]
  - EYELID OEDEMA [None]
  - RASH MORBILLIFORM [None]
